FAERS Safety Report 6237474-X (Version None)
Quarter: 2009Q2

REPORT INFORMATION
  Report Type: 
  Country: None (occurrence: None)
  Receive Date: 20090619
  Receipt Date: 20090618
  Transmission Date: 20091009
  Serious: Yes (Life-Threatening, Hospitalization, Disabling)
  Sender: FDA-Public Use
  Company Number: US-GENENTECH-284393

PATIENT
  Sex: Female
  Weight: 61.224 kg

DRUGS (2)
  1. AVASTIN [Suspect]
     Indication: BILE DUCT CANCER
     Dosage: 590 MG, DAY1+8/Q3W
     Route: 042
     Dates: start: 20090316, end: 20090507
  2. GEMZAR [Concomitant]
     Indication: DRUG USE FOR UNKNOWN INDICATION
     Dosage: 800 MG, DAY1+8/Q3W
     Dates: start: 20071121, end: 20090507

REACTIONS (3)
  - HYPERTENSION [None]
  - RENAL IMPAIRMENT [None]
  - THROMBOCYTOPENIC PURPURA [None]
